FAERS Safety Report 22748532 (Version 4)
Quarter: 2023Q4

REPORT INFORMATION
  Report Type: Spontaneous
  Country: JP (occurrence: JP)
  Receive Date: 20230725
  Receipt Date: 20231011
  Transmission Date: 20240110
  Serious: Yes (Hospitalization)
  Sender: FDA-Public Use
  Company Number: JP-JNJFOC-20230749150

PATIENT
  Age: 64 Year
  Sex: Female
  Weight: 64 kg

DRUGS (8)
  1. OPSUMIT [Suspect]
     Active Substance: MACITENTAN
     Indication: Pulmonary arterial hypertension
     Route: 048
     Dates: start: 20230328
  2. OPSUMIT [Suspect]
     Active Substance: MACITENTAN
     Dosage: DOSE UNKNOWN
     Route: 048
  3. UPTRAVI [Suspect]
     Active Substance: SELEXIPAG
     Indication: Pulmonary arterial hypertension
     Dosage: (2.4 MG/24 HOURS)
     Route: 048
     Dates: start: 20230328
  4. UPTRAVI [Suspect]
     Active Substance: SELEXIPAG
     Dosage: DOSE UNKNOWN
     Route: 048
  5. ADCIRCA [Suspect]
     Active Substance: TADALAFIL
     Indication: Pulmonary arterial hypertension
     Route: 048
     Dates: start: 20230328
  6. ADCIRCA [Suspect]
     Active Substance: TADALAFIL
     Dosage: DOSE UNKNOWN
     Route: 048
  7. LASIX [Suspect]
     Active Substance: FUROSEMIDE
     Indication: Cardiac failure
     Dosage: DOSE UNKNOWN
     Route: 065
  8. LASIX [Suspect]
     Active Substance: FUROSEMIDE
     Indication: Left ventricular failure

REACTIONS (4)
  - Left ventricular failure [Not Recovered/Not Resolved]
  - Blood pressure decreased [Recovered/Resolved]
  - Dyspnoea [Recovering/Resolving]
  - General physical health deterioration [Recovering/Resolving]
